FAERS Safety Report 12077443 (Version 3)
Quarter: 2016Q2

REPORT INFORMATION
  Report Type: Spontaneous
  Country: DE (occurrence: DE)
  Receive Date: 20160215
  Receipt Date: 20160414
  Transmission Date: 20160815
  Serious: Yes (Other)
  Sender: FDA-Public Use
  Company Number: DE-ABBVIE-16P-062-1559926-00

PATIENT
  Age: 5 Year
  Sex: Female
  Weight: 22 kg

DRUGS (1)
  1. KLACID [Suspect]
     Active Substance: CLARITHROMYCIN
     Indication: ATYPICAL PNEUMONIA
     Dosage: 500MG, CUMULATIVE DOSE NUMBER (TO FIRST REACTION) 1200 MG; DAILY DOSE: 300MG
     Route: 042
     Dates: start: 20160122, end: 20160125

REACTIONS (2)
  - Seizure [Recovering/Resolving]
  - Medication error [Unknown]

NARRATIVE: CASE EVENT DATE: 20160122
